APPROVED DRUG PRODUCT: TOLECTIN 600
Active Ingredient: TOLMETIN SODIUM
Strength: EQ 600MG BASE
Dosage Form/Route: TABLET;ORAL
Application: N017628 | Product #002
Applicant: ORTHO MCNEIL JANSSEN PHARMACEUTICALS INC
Approved: Mar 8, 1989 | RLD: Yes | RS: No | Type: DISCN